FAERS Safety Report 9442323 (Version 1)
Quarter: 2013Q3

REPORT INFORMATION
  Report Type: Spontaneous
  Country: US (occurrence: US)
  Receive Date: 20130806
  Receipt Date: 20130806
  Transmission Date: 20140515
  Serious: No
  Sender: FDA-Public Use
  Company Number: US-GLAXOSMITHKLINE-A1003073A

PATIENT
  Age: 77 Year
  Sex: Female

DRUGS (6)
  1. ADVAIR [Suspect]
     Indication: ASTHMA
     Dosage: 2PUFF TWICE PER DAY
     Route: 055
     Dates: start: 20121024, end: 201211
  2. ALBUTEROL [Concomitant]
  3. INSULIN [Concomitant]
  4. LISINOPRIL [Concomitant]
  5. GLIMEPIRIDE [Concomitant]
  6. AMLODIPINE [Concomitant]

REACTIONS (2)
  - Muscle spasms [Recovered/Resolved]
  - Pain in extremity [Unknown]
